FAERS Safety Report 4775788-0 (Version None)
Quarter: 2005Q3

REPORT INFORMATION
  Report Type: 
  Country: None (occurrence: None)
  Receive Date: 20050920
  Receipt Date: 20050920
  Transmission Date: 20060218
  Serious: No
  Sender: FDA-Public Use
  Company Number: None

PATIENT
  Age: 54 Year
  Sex: Female
  Weight: 82.6 kg

DRUGS (3)
  1. TRASTUZUMAB 440 MG VIAL GENENTECH [Suspect]
     Indication: BREAST CANCER
     Dosage: 2MG/KG QWK -D1,8,15 IV DRIP
     Route: 041
     Dates: start: 20050429, end: 20050705
  2. ABRAXANE [Concomitant]
  3. CARBOPLATIN [Concomitant]

REACTIONS (5)
  - ARTHRALGIA [None]
  - IMMUNE SYSTEM DISORDER [None]
  - MYALGIA [None]
  - POLYARTHRITIS [None]
  - SHOULDER PAIN [None]
